FAERS Safety Report 18898495 (Version 2)
Quarter: 2021Q1

REPORT INFORMATION
  Report Type: Spontaneous
  Country: PT (occurrence: PT)
  Receive Date: 20210216
  Receipt Date: 20210303
  Transmission Date: 20210420
  Serious: Yes (Hospitalization, Other)
  Sender: FDA-Public Use
  Company Number: PT-SA-2020SA231175

PATIENT
  Age: 67 Year
  Sex: Female

DRUGS (12)
  1. ROSUVASTATIN. [Concomitant]
     Active Substance: ROSUVASTATIN
  2. DUPILUMAB [Suspect]
     Active Substance: DUPILUMAB
  3. PERINDOPRIL [Concomitant]
     Active Substance: PERINDOPRIL
  4. DUPILUMAB [Suspect]
     Active Substance: DUPILUMAB
     Indication: NEURODERMATITIS
     Dosage: 300 UNKNOWN
  5. LINAGLIPTINA [Concomitant]
     Active Substance: LINAGLIPTIN
  6. HYDROXYZINE HYDROCHLORIDE. [Concomitant]
     Active Substance: HYDROXYZINE HYDROCHLORIDE
     Dosage: 25 MG, QD
  7. BISOPROLOL [Concomitant]
     Active Substance: BISOPROLOL
  8. LANTUS [Concomitant]
     Active Substance: INSULIN GLARGINE
     Dosage: 30 U
  9. METFORMINE [METFORMIN] [Concomitant]
     Active Substance: METFORMIN HYDROCHLORIDE
  10. TRAJENTA [Concomitant]
     Active Substance: LINAGLIPTIN
  11. INDAPAMIDE. [Concomitant]
     Active Substance: INDAPAMIDE
  12. MIRTAZAPINE. [Concomitant]
     Active Substance: MIRTAZAPINE
     Dosage: 30 MG, QD

REACTIONS (2)
  - Acute myocardial infarction [Unknown]
  - Off label use [Unknown]

NARRATIVE: CASE EVENT DATE: 20201129
